FAERS Safety Report 8945328 (Version 1)
Quarter: 2012Q4

REPORT INFORMATION
  Report Type: 
  Country: US (occurrence: US)
  Receive Date: 20121204
  Receipt Date: 20121204
  Transmission Date: 20130627
  Serious: No
  Sender: FDA-Public Use
  Company Number: US-AMGEN-USASP2012062324

PATIENT
  Sex: Male

DRUGS (1)
  1. ENBREL [Suspect]
     Indication: PSORIASIS
     Dosage: 50mg biweekly
     Dates: start: 20100101

REACTIONS (2)
  - Contusion [Not Recovered/Not Resolved]
  - Psoriasis [Not Recovered/Not Resolved]
